FAERS Safety Report 7437658-9 (Version None)
Quarter: 2011Q2

REPORT INFORMATION
  Report Type: 
  Country: None (occurrence: None)
  Receive Date: 20110426
  Receipt Date: 20110424
  Transmission Date: 20111010
  Serious: No
  Sender: FDA-Public Use
  Company Number: US-PFIZER INC-2011088322

PATIENT
  Sex: Male
  Weight: 86.168 kg

DRUGS (4)
  1. ATENOLOL [Concomitant]
     Indication: ATRIAL FIBRILLATION
  2. ACETYLSALICYLIC ACID [Concomitant]
     Dosage: UNK
  3. ZITHROMAX [Suspect]
     Indication: LOWER RESPIRATORY TRACT INFECTION
     Dosage: 250 MG, 2X/DAY
     Route: 048
     Dates: start: 20110424
  4. ATENOLOL [Concomitant]
     Indication: ARRHYTHMIA
     Dosage: 12.5 MG, UNK

REACTIONS (1)
  - COUGH [None]
